FAERS Safety Report 8068398-3 (Version None)
Quarter: 2012Q1

REPORT INFORMATION
  Report Type: 
  Country: None (occurrence: None)
  Receive Date: 20120124
  Receipt Date: 20111021
  Transmission Date: 20120608
  Serious: No
  Sender: FDA-Public Use
  Company Number: US-AMGEN-USASP2011054559

PATIENT
  Age: 68 Year
  Sex: Female

DRUGS (8)
  1. MULTIVITAMIN                       /00097801/ [Concomitant]
  2. MAGNESIUM SULFATE [Concomitant]
  3. VITAMIN D [Concomitant]
  4. VERAPAMIL [Concomitant]
     Dosage: UNK
  5. SERTEX [Concomitant]
     Dosage: UNK
  6. CALCIUM [Concomitant]
  7. PROLIA [Suspect]
     Indication: OSTEOPOROSIS POSTMENOPAUSAL
     Dates: start: 20110419
  8. WELLBUTRIN [Concomitant]
     Dosage: UNK

REACTIONS (4)
  - RASH [None]
  - HYPERSENSITIVITY [None]
  - PRURITUS [None]
  - LICHENIFICATION [None]
